FAERS Safety Report 18747577 (Version 4)
Quarter: 2024Q3

REPORT INFORMATION
  Report Type: Report from Study
  Country: BR (occurrence: BR)
  Receive Date: 20210115
  Receipt Date: 20240809
  Transmission Date: 20241017
  Serious: Yes (Hospitalization, Other)
  Sender: NOVARTIS
  Company Number: NVSC2021BR002584

PATIENT
  Age: 50 Year
  Sex: Male

DRUGS (7)
  1. COSENTYX [Suspect]
     Active Substance: SECUKINUMAB
     Indication: Psoriatic arthropathy
     Dosage: UNK, INJECTION NOS
     Route: 065
     Dates: start: 20190220
  2. COSENTYX [Suspect]
     Active Substance: SECUKINUMAB
     Dosage: UNK, INJECTION NOS
     Route: 065
  3. COSENTYX [Suspect]
     Active Substance: SECUKINUMAB
     Dosage: UNK, INJECTION NOS
     Route: 065
     Dates: end: 202010
  4. COSENTYX [Suspect]
     Active Substance: SECUKINUMAB
     Dosage: UNK (FREQUENCY: ATTACK DOSES, ABOUT 2 YEARS AGO)
     Route: 065
     Dates: end: 202011
  5. ATENOLOL [Suspect]
     Active Substance: ATENOLOL
     Indication: Hypertension
     Dosage: UNK
     Route: 065
  6. ALPRAZOLAM [Concomitant]
     Active Substance: ALPRAZOLAM
     Indication: Hypertension
     Dosage: UNK
     Route: 065
  7. ASPIRIN [Concomitant]
     Active Substance: ASPIRIN
     Indication: Hypertension
     Dosage: UNK
     Route: 065

REACTIONS (28)
  - Angina pectoris [Recovered/Resolved with Sequelae]
  - Infarction [Unknown]
  - Polyarthritis [Unknown]
  - Coronary artery occlusion [Unknown]
  - Psoriatic arthropathy [Not Recovered/Not Resolved]
  - Tuberculosis [Unknown]
  - Cerebrovascular accident [Unknown]
  - Cardiac failure [Unknown]
  - Decreased immune responsiveness [Unknown]
  - Cardiac disorder [Unknown]
  - Coronary artery disease [Unknown]
  - Hypertension [Unknown]
  - Fatigue [Unknown]
  - Malaise [Unknown]
  - Feeling abnormal [Unknown]
  - Asthenia [Unknown]
  - Chest pain [Unknown]
  - Liver disorder [Unknown]
  - Pain [Not Recovered/Not Resolved]
  - Mobility decreased [Unknown]
  - Muscle spasms [Unknown]
  - Muscle fatigue [Unknown]
  - Psoriasis [Unknown]
  - Product dose omission issue [Unknown]
  - Discouragement [Unknown]
  - Limb injury [Unknown]
  - Muscle injury [Unknown]
  - Skin plaque [Unknown]

NARRATIVE: CASE EVENT DATE: 20200201
